FAERS Safety Report 17280062 (Version 3)
Quarter: 2020Q1

REPORT INFORMATION
  Report Type: Spontaneous
  Country: RU (occurrence: RU)
  Receive Date: 20200117
  Receipt Date: 20200129
  Transmission Date: 20200409
  Serious: Yes (Death, Life-Threatening, Hospitalization, Other)
  Sender: FDA-Public Use
  Company Number: RU-AUROBINDO-AUR-APL-2020-002726

PATIENT
  Age: 36 Year
  Sex: Female

DRUGS (1)
  1. AMOXICILLIN AND CLAVULANIC POTASSIUM [Suspect]
     Active Substance: AMOXICILLIN\CLAVULANATE POTASSIUM
     Indication: PYELONEPHRITIS
     Dosage: 875 MILLIGRAM, TWO TIMES A DAY
     Route: 048

REACTIONS (29)
  - Pre-eclampsia [Unknown]
  - Pancreatic necrosis [Fatal]
  - Septic shock [Fatal]
  - Multiple organ dysfunction syndrome [Fatal]
  - Blood lactate dehydrogenase increased [Fatal]
  - Acute hepatic failure [Fatal]
  - HELLP syndrome [Unknown]
  - Hypovolaemia [Unknown]
  - Metabolic acidosis [Unknown]
  - Cardiac arrest [Fatal]
  - Acute kidney injury [Fatal]
  - Blood bilirubin increased [Fatal]
  - Blood alkaline phosphatase increased [Fatal]
  - Disseminated intravascular coagulation [Fatal]
  - Pancreatitis necrotising [Fatal]
  - Acute fatty liver of pregnancy [Fatal]
  - Acute respiratory failure [Fatal]
  - Hepatic failure [Not Recovered/Not Resolved]
  - Maternal exposure during pregnancy [Fatal]
  - Abdominal pain [Fatal]
  - Nausea [Fatal]
  - Cardiac failure acute [Fatal]
  - Acute respiratory distress syndrome [Fatal]
  - Poisoning [Fatal]
  - Intra-abdominal fluid collection [Unknown]
  - Sepsis [Fatal]
  - Ascites [Fatal]
  - Alanine aminotransferase increased [Fatal]
  - Exposure during pregnancy [Fatal]
